FAERS Safety Report 11361696 (Version 1)
Quarter: 2015Q3

REPORT INFORMATION
  Report Type: Report from Study
  Country: US (occurrence: US)
  Receive Date: 20150810
  Receipt Date: 20150810
  Transmission Date: 20151125
  Serious: Yes (Other)
  Sender: FDA-Public Use
  Company Number: US-ACTELION-A-US2015-117566

PATIENT
  Age: 66 Year
  Sex: Female

DRUGS (1)
  1. MACITENTAN [Suspect]
     Active Substance: MACITENTAN
     Indication: PULMONARY HYPERTENSION
     Dosage: 10 MG, QD
     Route: 048

REACTIONS (13)
  - Dyspnoea exertional [Unknown]
  - Chest pain [Unknown]
  - Dyspnoea [Unknown]
  - Oedema peripheral [Unknown]
  - Fatigue [Unknown]
  - Palpitations [Unknown]
  - Hypersensitivity [Unknown]
  - Emotional distress [Unknown]
  - Nasopharyngitis [Unknown]
  - Dizziness [Unknown]
  - Cardiac assistance device user [Unknown]
  - Abdominal discomfort [Recovering/Resolving]
  - Asthenia [Unknown]
